FAERS Safety Report 20135462 (Version 2)
Quarter: 2021Q4

REPORT INFORMATION
  Report Type: Spontaneous
  Country: US (occurrence: US)
  Receive Date: 20211201
  Receipt Date: 20211215
  Transmission Date: 20220303
  Serious: Yes (Other)
  Sender: FDA-Public Use
  Company Number: US-VERTEX PHARMACEUTICALS-2021-018756

PATIENT
  Age: 19 Year
  Sex: Male

DRUGS (14)
  1. TRIKAFTA [Suspect]
     Active Substance: ELEXACAFTOR\IVACAFTOR\TEZACAFTOR
     Indication: Cystic fibrosis
     Dosage: 2 ORANGE TABS AM, 1 BLUE TAB PM
     Route: 048
     Dates: start: 20200214
  2. ALBUTEROL [Concomitant]
     Active Substance: ALBUTEROL
     Indication: Cough
     Dosage: TAKE 3 ML (2.5MG/3ML- 0.083%) BY NEBULIZATION TID; EVERY 3-4 HOURS AS NEEDED
  3. ALBUTEROL [Concomitant]
     Active Substance: ALBUTEROL
     Indication: Wheezing
  4. PROAIR HFA [Concomitant]
     Active Substance: ALBUTEROL SULFATE
     Indication: Wheezing
     Dosage: 90 MCG/ACTUATION, 3-4 PUFFS EVERY FOUR HOURS
  5. PROAIR HFA [Concomitant]
     Active Substance: ALBUTEROL SULFATE
     Indication: Dyspnoea
  6. AZITHROMYCIN [Concomitant]
     Active Substance: AZITHROMYCIN
     Dosage: 1 TABLET DAILY EVERY MONDAY, WEDNESDAY, FRIDAY
  7. CALCIUM CARBONATE\CHOLECALCIFEROL [Concomitant]
     Active Substance: CALCIUM CARBONATE\CHOLECALCIFEROL
     Dosage: 1 TABLET, TID
     Route: 048
  8. PULMOZYME [Concomitant]
     Active Substance: DORNASE ALFA
     Dosage: 1 AMPULE VIA NEBULIZER DAILY
  9. FLUTICASONE PROPIONATE AND SALMETEROL [Concomitant]
     Active Substance: FLUTICASONE PROPIONATE\SALMETEROL XINAFOATE
     Dosage: 115-21 MCG/ACTUATION, TWO PUFFS BID, USE BEFORE HYPERSAL
  10. ZENPEP [Concomitant]
     Active Substance: PANCRELIPASE AMYLASE\PANCRELIPASE LIPASE\PANCRELIPASE PROTEASE
     Dosage: 20,000-63,000-84,000 UNITS; 5 CAPSULES WITH MEALS TDS/ 3 CAPSULES WITH SNACKS TDS
     Route: 048
  11. PANTOPRAZOLE [Concomitant]
     Active Substance: PANTOPRAZOLE
     Dosage: 1 TABLET BEFORE BREAKFAST
     Route: 048
  12. PHYTONADIONE [Concomitant]
     Active Substance: PHYTONADIONE
     Dosage: 1 TABLET QD
     Route: 048
  13. SODIUM CHLORIDE [Concomitant]
     Active Substance: SODIUM CHLORIDE
     Dosage: 4 ML, BID
  14. KITABIS PAK [Concomitant]
     Active Substance: TOBRAMYCIN
     Dosage: 300MG/5ML;  INHALE 5 ML  BID FOR 28 DAYS, CYCLE OFF/ON EVERY 28 DAYS

REACTIONS (1)
  - Gastric fistula repair [Recovered/Resolved]

NARRATIVE: CASE EVENT DATE: 20200801
